FAERS Safety Report 8367472-1 (Version None)
Quarter: 2012Q2

REPORT INFORMATION
  Report Type: 
  Country: None (occurrence: None)
  Receive Date: 20120517
  Receipt Date: 20120227
  Transmission Date: 20120825
  Serious: Yes (Other)
  Sender: FDA-Public Use
  Company Number: US-GLAXOSMITHKLINE-A0968412A

PATIENT
  Age: 59 Year
  Sex: Female

DRUGS (2)
  1. VOTRIENT [Suspect]
     Indication: RENAL CELL CARCINOMA
     Dosage: 800MG UNKNOWN
     Route: 048
     Dates: start: 20120101
  2. UNKNOWN [Concomitant]

REACTIONS (4)
  - FATIGUE [None]
  - VOMITING [None]
  - HEPATIC ENZYME INCREASED [None]
  - NAUSEA [None]
